FAERS Safety Report 6264459-X (Version None)
Quarter: 2009Q3

REPORT INFORMATION
  Report Type: 
  Country: None (occurrence: None)
  Receive Date: 20090708
  Receipt Date: 20090626
  Transmission Date: 20100115
  Serious: Yes (Disabling)
  Sender: FDA-Public Use
  Company Number: OSCN-NO-0903S-0173

PATIENT

DRUGS (5)
  1. OMNISCAN [Suspect]
     Indication: DRUG USE FOR UNKNOWN INDICATION
     Dosage: 40 ML, SINGLE DOSE, I.V.
     Route: 042
     Dates: start: 20051208, end: 20051208
  2. GADOPENTETATE DIMEGLUMINE (MAGNEVIST) [Concomitant]
  3. EPOITIN BETA (NEORECORMON) [Concomitant]
  4. AZATHIOPRINE (IMUREL) [Concomitant]
  5. SANDIMMUNE [Concomitant]

REACTIONS (1)
  - NEPHROGENIC SYSTEMIC FIBROSIS [None]
